FAERS Safety Report 16126789 (Version 1)
Quarter: 2019Q1

REPORT INFORMATION
  Report Type: Spontaneous
  Country: DK (occurrence: DK)
  Receive Date: 20190328
  Receipt Date: 20190328
  Transmission Date: 20190418
  Serious: Yes (Disabling)
  Sender: FDA-Public Use
  Company Number: DK-ACCORD-115970

PATIENT
  Age: 63 Year
  Sex: Male

DRUGS (4)
  1. FLUOROURACIL ACCORD [Suspect]
     Active Substance: FLUOROURACIL
     Indication: INTRAOCULAR PRESSURE INCREASED
     Dosage: 50 MG/ML.RIGHT EYE:MAY 07,2015,MAY 22, 2015,JAN 19,2015,JULY 10,2015, MARCH 18, 2016,MARCH 29,2016
     Route: 050
     Dates: start: 20150409, end: 20160329
  2. VOLTAREN [Concomitant]
     Active Substance: DICLOFENAC SODIUM
     Indication: PRODUCT USED FOR UNKNOWN INDICATION
     Route: 050
     Dates: start: 20160105, end: 2016
  3. FUCITHALMIC [Concomitant]
     Active Substance: FUSIDIC ACID
     Indication: PRODUCT USED FOR UNKNOWN INDICATION
     Dosage: STYRKE: 1 %.
     Route: 050
     Dates: start: 20150414
  4. MONOPEX [Concomitant]
     Indication: EYE INFLAMMATION
     Dosage: STRENGTH: 1MG/ML
     Route: 050
     Dates: end: 20160503

REACTIONS (20)
  - Contact lens therapy [Recovered/Resolved]
  - Eye haemorrhage [Unknown]
  - Corneal reflex decreased [Not Recovered/Not Resolved]
  - Corneal opacity [Not Recovered/Not Resolved]
  - Smear test [Recovered/Resolved]
  - Diplopia [Not Recovered/Not Resolved]
  - Visual field defect [Not Recovered/Not Resolved]
  - Vision blurred [Not Recovered/Not Resolved]
  - Ocular hyperaemia [Unknown]
  - Limbal stem cell deficiency [Not Recovered/Not Resolved]
  - Eye oedema [Recovered/Resolved]
  - Strabismus [Not Recovered/Not Resolved]
  - Eye irritation [Not Recovered/Not Resolved]
  - Photophobia [Not Recovered/Not Resolved]
  - Off label use [Unknown]
  - Visual impairment [Not Recovered/Not Resolved]
  - Dysplasia [Recovered/Resolved]
  - Refraction disorder [Not Recovered/Not Resolved]
  - Optic nerve disorder [Not Recovered/Not Resolved]
  - Pupillary reflex impaired [Not Recovered/Not Resolved]

NARRATIVE: CASE EVENT DATE: 2015
